FAERS Safety Report 22289357 (Version 1)
Quarter: 2023Q2

REPORT INFORMATION
  Report Type: Spontaneous
  Country: US (occurrence: None)
  Receive Date: 20230504
  Receipt Date: 20230504
  Transmission Date: 20230721
  Serious: No
  Sender: FDA-Public Use
  Company Number: None

PATIENT
  Age: 8 Year
  Sex: Male
  Weight: 26.28 kg

DRUGS (1)
  1. CUVITRU [Suspect]
     Active Substance: HUMAN IMMUNOGLOBULIN G
     Indication: Hypogammaglobulinaemia
     Dosage: FREQUENCY : WEEKLY;?
     Route: 058
     Dates: start: 20230123

REACTIONS (2)
  - Infusion site rash [None]
  - Infusion site pruritus [None]

NARRATIVE: CASE EVENT DATE: 20230501
